FAERS Safety Report 15729141 (Version 2)
Quarter: 2018Q4

REPORT INFORMATION
  Report Type: Spontaneous
  Country: CN (occurrence: CN)
  Receive Date: 20181217
  Receipt Date: 20181227
  Transmission Date: 20190205
  Serious: Yes (Death)
  Sender: FDA-Public Use
  Company Number: CN-BAYER-2018-231907

PATIENT
  Age: 18 Year
  Sex: Female

DRUGS (3)
  1. YASMIN [Suspect]
     Active Substance: DROSPIRENONE\ETHINYL ESTRADIOL
     Indication: CONTRACEPTION
     Dosage: 1 DF, QD
     Route: 048
     Dates: start: 201811
  2. COMPOUND PARACETAMOL AND AMANTADINE HYDROCHLORIDE [AMANTADINE HYDROCHL [Concomitant]
     Indication: NASOPHARYNGITIS
  3. AMANTADINE COMPOUND [Concomitant]
     Indication: NASOPHARYNGITIS

REACTIONS (8)
  - Pulmonary embolism [Fatal]
  - Nasopharyngitis [Not Recovered/Not Resolved]
  - Rhinorrhoea [Not Recovered/Not Resolved]
  - Coma [Fatal]
  - Cough [Not Recovered/Not Resolved]
  - Product dose omission [None]
  - Pyrexia [Not Recovered/Not Resolved]
  - Autoimmune haemolytic anaemia [Fatal]

NARRATIVE: CASE EVENT DATE: 2018
